FAERS Safety Report 15717433 (Version 1)
Quarter: 2018Q4

REPORT INFORMATION
  Report Type: Spontaneous
  Country: US (occurrence: US)
  Receive Date: 20181129
  Receipt Date: 20181129
  Transmission Date: 20190205
  Serious: Yes (Other)
  Sender: FDA-Public Use
  Company Number: None

PATIENT
  Age: 56 Year
  Sex: Female
  Weight: 122.02 kg

DRUGS (2)
  1. GAMUNEX [Suspect]
     Active Substance: HUMAN IMMUNOGLOBULIN G
     Indication: CHRONIC INFLAMMATORY DEMYELINATING POLYRADICULONEUROPATHY
     Dosage: ?          OTHER FREQUENCY:DAILY X 2 DAY;?
     Route: 042
     Dates: start: 20181127, end: 20181128
  2. GAMUNEX [Suspect]
     Active Substance: HUMAN IMMUNOGLOBULIN G
     Dosage: ?          OTHER FREQUENCY:DAILY X 2 DAY;?
     Route: 042
     Dates: start: 20181127, end: 20181128

REACTIONS (5)
  - Rash papular [None]
  - Rash pruritic [None]
  - Infusion related reaction [None]
  - Rash erythematous [None]
  - Ear congestion [None]

NARRATIVE: CASE EVENT DATE: 20181127
